FAERS Safety Report 5037507-2 (Version None)
Quarter: 2006Q2

REPORT INFORMATION
  Report Type: 
  Country: None (occurrence: None)
  Receive Date: 20060609
  Receipt Date: 20060323
  Transmission Date: 20061013
  Serious: Yes (Life-Threatening)
  Sender: FDA-Public Use
  Company Number: 044

PATIENT
  Sex: Male

DRUGS (8)
  1. FAZACLO ODT [Suspect]
     Indication: BIPOLAR DISORDER
     Dosage: 300 MG PO DAILY
     Route: 048
     Dates: start: 20051018, end: 20060321
  2. FAZACLO ODT [Suspect]
     Indication: PSYCHOTIC DISORDER
     Dosage: 300 MG PO DAILY
     Route: 048
     Dates: start: 20051018, end: 20060321
  3. KLONOPIN [Concomitant]
  4. COGENTIN [Concomitant]
  5. LEXAPRO [Concomitant]
  6. GEODON [Concomitant]
  7. RISPERDAL [Concomitant]
  8. DILANTIN [Concomitant]

REACTIONS (1)
  - AGRANULOCYTOSIS [None]
